FAERS Safety Report 6642722-8 (Version None)
Quarter: 2010Q1

REPORT INFORMATION
  Report Type: 
  Country: None (occurrence: None)
  Receive Date: 20100319
  Receipt Date: 20100310
  Transmission Date: 20100710
  Serious: Yes (Other)
  Sender: FDA-Public Use
  Company Number: JP-PFIZER INC-2010029166

PATIENT
  Age: 73 Year
  Sex: Male

DRUGS (8)
  1. DOXAZOSIN MESYLATE [Suspect]
     Indication: HYPERTENSION
     Dosage: 4 MG DAILY
     Route: 048
  2. AMLODIPINE BESILATE [Suspect]
     Indication: HYPERTENSION
     Dosage: 5 MG DAILY
     Route: 048
  3. BISOPROLOL FUMARATE [Suspect]
     Dosage: 2 TABLETS DAILY
  4. CANDESARTAN CILEXETIL [Suspect]
     Indication: HYPERTENSION
     Dosage: 8 MG DAILY
     Route: 048
  5. ALLOPURINOL [Suspect]
     Indication: GOUT
     Dosage: 2 TABLETS DAILY
     Route: 048
  6. TAMSULOSIN HYDROCHLORIDE [Suspect]
     Indication: BENIGN PROSTATIC HYPERPLASIA
     Dosage: 1 MG DAILY
     Route: 048
  7. THIOLA [Suspect]
     Dosage: UNK
     Route: 048
  8. GLYCYRON [Suspect]
     Dosage: UNK
     Route: 048

REACTIONS (1)
  - ASPARTATE AMINOTRANSFERASE INCREASED [None]
